FAERS Safety Report 4284644-6 (Version None)
Quarter: 2004Q1

REPORT INFORMATION
  Report Type: 
  Country: None (occurrence: None)
  Receive Date: 20040130
  Receipt Date: 20040109
  Transmission Date: 20041129
  Serious: Yes (Hospitalization)
  Sender: FDA-Public Use
  Company Number: FR_040103389

PATIENT
  Age: 36 Year
  Sex: Female

DRUGS (2)
  1. HUMALOG [Suspect]
     Indication: GESTATIONAL DIABETES
     Dates: start: 20040102, end: 20040109
  2. HUMULIN N [Suspect]
     Indication: GESTATIONAL DIABETES
     Dates: start: 20040102, end: 20040109

REACTIONS (3)
  - COMPLICATIONS OF MATERNAL EXPOSURE TO THERAPEUTIC DRUGS [None]
  - LOCALISED OEDEMA [None]
  - OEDEMA PERIPHERAL [None]
